FAERS Safety Report 15857972 (Version 1)
Quarter: 2019Q1

REPORT INFORMATION
  Report Type: Spontaneous
  Country: US (occurrence: US)
  Receive Date: 20190123
  Receipt Date: 20190123
  Transmission Date: 20190417
  Serious: No
  Sender: FDA-Public Use
  Company Number: US-NAPO PHARMACEUTICALS, INC.-2061620

PATIENT
  Sex: Male

DRUGS (1)
  1. FULYZAQ [Suspect]
     Active Substance: CROFELEMER
     Route: 048

REACTIONS (1)
  - Dizziness [Unknown]
